FAERS Safety Report 4529135-X (Version None)
Quarter: 2004Q4

REPORT INFORMATION
  Report Type: 
  Country: None (occurrence: None)
  Receive Date: 20041214
  Receipt Date: 20041201
  Transmission Date: 20050328
  Serious: Yes (Other)
  Sender: FDA-Public Use
  Company Number: 2004100145

PATIENT
  Age: 46 Year
  Sex: Female

DRUGS (5)
  1. MINOXIDIL [Suspect]
     Indication: HYPERTENSION
     Dosage: 10 MG (10 MG, SINGLE INTERVAL:  DAILY), ORAL
     Route: 048
     Dates: start: 20030101, end: 20041001
  2. MINOXIDIL [Suspect]
     Indication: HYPERTENSION
     Dosage: 10 MG (10 MG, SINGLE INTERVAL:  DAILY), ORAL
     Route: 048
     Dates: start: 20040101
  3. PROPRANOLOL [Concomitant]
  4. CAPTOPRIL [Concomitant]
  5. FUROSEMIDE [Concomitant]

REACTIONS (2)
  - HYPERTENSIVE CRISIS [None]
  - TREATMENT NONCOMPLIANCE [None]
